FAERS Safety Report 10710568 (Version 3)
Quarter: 2015Q1

REPORT INFORMATION
  Report Type: Spontaneous
  Country: US (occurrence: None)
  Receive Date: 20150112
  Receipt Date: 20150320
  Transmission Date: 20150721
  Serious: Yes (Life-Threatening, Hospitalization, Other)
  Sender: FDA-Public Use
  Company Number: ADR-2014-02263

PATIENT
  Age: 75 Year
  Sex: Male

DRUGS (3)
  1. COMPOUNDED BACLOFEN INTRATHECAL 50MCG/ML [Suspect]
     Active Substance: BACLOFEN
     Indication: PAIN
  2. COMPOUNDED BACLOFEN INTRATHECAL 50MCG/ML [Suspect]
     Active Substance: BACLOFEN
  3. HYDROMORPHONE INTRATHECAL [Suspect]
     Active Substance: HYDROMORPHONE
     Route: 037

REACTIONS (11)
  - Device damage [None]
  - Aggression [None]
  - Device physical property issue [None]
  - Sedation [None]
  - Device malfunction [None]
  - Device failure [None]
  - Cardiac disorder [None]
  - Device power source issue [None]
  - Overdose [None]
  - Device infusion issue [None]
  - Pain [None]
